FAERS Safety Report 7771072-1 (Version None)
Quarter: 2011Q3

REPORT INFORMATION
  Report Type: 
  Country: None (occurrence: None)
  Receive Date: 20110922
  Receipt Date: 20110603
  Transmission Date: 20111222
  Serious: No
  Sender: FDA-Public Use
  Company Number: US-ASTRAZENECA-2011SE34214

PATIENT
  Age: 29 Year
  Sex: Female
  Weight: 72.6 kg

DRUGS (13)
  1. SEROQUEL [Suspect]
     Indication: SLEEP DISORDER
     Dosage: 50-100 MG AT NIGHT
     Route: 048
     Dates: start: 20100101, end: 20100201
  2. NAPROXEN [Concomitant]
  3. NEURONTIN [Concomitant]
  4. HYDROCHLOROTHIAZIDE [Concomitant]
  5. BUSPAR [Concomitant]
  6. HUMULIN R [Concomitant]
  7. LAMICTAL [Concomitant]
  8. HUMULIN N [Concomitant]
  9. M.V.I. [Concomitant]
  10. SEROQUEL [Suspect]
     Indication: BIPOLAR DISORDER
     Dosage: 50-100 MG AT NIGHT
     Route: 048
     Dates: start: 20100101, end: 20100201
  11. PRAVASTATIN [Concomitant]
  12. FISH OIL [Concomitant]
  13. METFORMIN [Concomitant]

REACTIONS (3)
  - DRUG DOSE OMISSION [None]
  - THERAPEUTIC RESPONSE UNEXPECTED [None]
  - INSOMNIA [None]
